FAERS Safety Report 5154741-1 (Version None)
Quarter: 2006Q4

REPORT INFORMATION
  Report Type: 
  Country: None (occurrence: None)
  Receive Date: 20061115
  Receipt Date: 20061115
  Transmission Date: 20070319
  Serious: No
  Sender: FDA-Public Use
  Company Number: None

PATIENT
  Age: 51 Year
  Sex: Male
  Weight: 131.5431 kg

DRUGS (1)
  1. ACAMPROSATE    333 MG [Suspect]
     Indication: ALCOHOLISM
     Dosage: 333 MG   2 TABS BID  PO
     Route: 048
     Dates: start: 20060713, end: 20060920

REACTIONS (2)
  - RASH PRURITIC [None]
  - REACTION TO PRESERVATIVES [None]
